FAERS Safety Report 11873132 (Version 1)
Quarter: 2015Q4

REPORT INFORMATION
  Report Type: Spontaneous
  Country: US (occurrence: US)
  Receive Date: 20151228
  Receipt Date: 20151228
  Transmission Date: 20160305
  Serious: No
  Sender: FDA-Public Use
  Company Number: US-PFIZER INC-2015468772

PATIENT
  Sex: Female

DRUGS (8)
  1. AMOXICILLIN. [Suspect]
     Active Substance: AMOXICILLIN
     Dosage: UNK
  2. LOSARTAN POTASSIUM. [Suspect]
     Active Substance: LOSARTAN POTASSIUM
     Dosage: UNK
  3. KEFLEXIN [Suspect]
     Active Substance: CEPHALEXIN ANHYDROUS
     Dosage: UNK
  4. ENALAPRIL [Suspect]
     Active Substance: ENALAPRIL
     Dosage: UNK
  5. AZITHROMYCIN [Suspect]
     Active Substance: AZITHROMYCIN ANHYDROUS
     Dosage: UNK
  6. FERCAYL [Suspect]
     Active Substance: IRON DEXTRAN
     Dosage: UNK
  7. SUPRAX /00497602/ [Suspect]
     Active Substance: CEFOTAXIME SODIUM
     Dosage: UNK
  8. VASOTEC [Suspect]
     Active Substance: ENALAPRIL MALEATE
     Dosage: UNK

REACTIONS (1)
  - Drug hypersensitivity [Unknown]
